FAERS Safety Report 5806027-7 (Version None)
Quarter: 2008Q3

REPORT INFORMATION
  Report Type: 
  Country: None (occurrence: None)
  Receive Date: 20080710
  Receipt Date: 20080625
  Transmission Date: 20090109
  Serious: Yes (Hospitalization)
  Sender: FDA-Public Use
  Company Number: JP-GENENTECH-260823

PATIENT
  Sex: Female
  Weight: 52.3 kg

DRUGS (4)
  1. BEVACIZUMAB [Suspect]
     Indication: NON-SMALL CELL LUNG CANCER
     Dosage: 785 MG, 3/WEEK
     Route: 042
     Dates: start: 20070831
  2. CARBOPLATIN [Suspect]
     Indication: NON-SMALL CELL LUNG CANCER
     Dosage: 760 MG, 3/WEEK
     Route: 042
     Dates: start: 20070831, end: 20080109
  3. PACLITAXEL [Suspect]
     Indication: NON-SMALL CELL LUNG CANCER
     Dosage: 305 MG, 3/WEEK
     Route: 042
     Dates: start: 20070831, end: 20080109
  4. FLUNITRAZEPAM [Concomitant]
     Indication: DRUG USE FOR UNKNOWN INDICATION

REACTIONS (2)
  - ENTEROCOLITIS [None]
  - HEADACHE [None]
